FAERS Safety Report 9162230 (Version 1)
Quarter: 2013Q1

REPORT INFORMATION
  Report Type: Spontaneous
  Country: US (occurrence: None)
  Receive Date: 20130222
  Receipt Date: 20130222
  Transmission Date: 20140127
  Serious: Yes (Other)
  Sender: FDA-Public Use
  Company Number: ACO_22369_2010

PATIENT
  Age: 69 Year
  Sex: Female

DRUGS (3)
  1. AMPYRA (DALFAMPRIDINE) TABLET, 10MG [Suspect]
     Indication: PRODUCT USED FOR UNKNOWN INDICATION
     Dates: start: 20100704, end: 20100719
  2. DOXEPIN (DOXEPIN) (DOXEPIN) [Concomitant]
  3. LORAZEPAM (LORAZEPAM) [Concomitant]

REACTIONS (4)
  - Convulsion [None]
  - Inappropriate schedule of drug administration [None]
  - Tremor [None]
  - Abasia [None]
